FAERS Safety Report 24747790 (Version 1)
Quarter: 2024Q4

REPORT INFORMATION
  Report Type: Report from Study
  Country: JP (occurrence: JP)
  Receive Date: 20241218
  Receipt Date: 20241218
  Transmission Date: 20250114
  Serious: Yes (Life-Threatening, Other)
  Sender: MERZ
  Company Number: JP-teijin-202404765_XEO_P_1

PATIENT

DRUGS (1)
  1. XEOMIN [Suspect]
     Active Substance: INCOBOTULINUMTOXINA
     Indication: Muscle spasticity
     Dosage: 400 INTERNATIONAL UNIT
     Route: 030
     Dates: start: 20231004, end: 20231004

REACTIONS (2)
  - Aortic dissection [Unknown]
  - Off label use [Unknown]

NARRATIVE: CASE EVENT DATE: 20231004
